FAERS Safety Report 17260088 (Version 1)
Quarter: 2020Q1

REPORT INFORMATION
  Report Type: Spontaneous
  Country: HR (occurrence: HR)
  Receive Date: 20200111
  Receipt Date: 20200111
  Transmission Date: 20200409
  Serious: Yes (Hospitalization, Other)
  Sender: FDA-Public Use
  Company Number: HR-TEVA-2020-HR-1166180

PATIENT
  Age: 2 Year
  Sex: Male
  Weight: 14 kg

DRUGS (1)
  1. KLAVOCIN BID [Suspect]
     Active Substance: AMOXICILLIN\CLAVULANATE POTASSIUM
     Indication: PHARYNGITIS
     Dosage: 400MG + 57MG/5ML; 4ML TWICE DAILY EVERY 12 HOURS
     Route: 048
     Dates: start: 20191211, end: 20191216

REACTIONS (4)
  - Vomiting [Recovering/Resolving]
  - Anorectal discomfort [Recovering/Resolving]
  - Diarrhoea [Recovering/Resolving]
  - Perianal erythema [Recovering/Resolving]

NARRATIVE: CASE EVENT DATE: 20191212
